FAERS Safety Report 15543831 (Version 2)
Quarter: 2018Q4

REPORT INFORMATION
  Report Type: Report from Study
  Country: ES (occurrence: ES)
  Receive Date: 20181023
  Receipt Date: 20181126
  Transmission Date: 20190205
  Serious: Yes (Hospitalization)
  Sender: FDA-Public Use
  Company Number: PHHO2018ES011376

PATIENT
  Age: 34 Year
  Sex: Male

DRUGS (6)
  1. SIMVASTATIN. [Concomitant]
     Active Substance: SIMVASTATIN
     Indication: DYSLIPIDAEMIA
     Dosage: 20 MG, QD
     Route: 048
     Dates: start: 20150526, end: 20181012
  2. AIN457 [Suspect]
     Active Substance: SECUKINUMAB
     Indication: PSORIATIC ARTHROPATHY
     Dosage: 300 MG, UNK
     Route: 058
     Dates: start: 20180710, end: 20181001
  3. AIN457 [Suspect]
     Active Substance: SECUKINUMAB
     Dosage: UNK
     Route: 058
     Dates: start: 20181105
  4. ISONIAZID. [Concomitant]
     Active Substance: ISONIAZID
     Indication: TUBERCULOSIS
     Dosage: 300 MG, QD
     Route: 048
     Dates: start: 20171103, end: 20181012
  5. NAPROXENE [Concomitant]
     Active Substance: NAPROXEN
     Indication: PSORIATIC ARTHROPATHY
     Dosage: 500 MG, BID
     Route: 048
     Dates: start: 20171016, end: 20181012
  6. ESOMEPRAZOLE. [Concomitant]
     Active Substance: ESOMEPRAZOLE MAGNESIUM
     Indication: PROPHYLAXIS
     Dosage: 20 MG, QD
     Route: 048
     Dates: start: 20171016, end: 20181012

REACTIONS (3)
  - Gastroenteritis [Recovered/Resolved]
  - Acute kidney injury [Unknown]
  - Bacteraemia [Unknown]

NARRATIVE: CASE EVENT DATE: 20181013
